FAERS Safety Report 9166071 (Version 1)
Quarter: 2013Q1

REPORT INFORMATION
  Report Type: Spontaneous
  Country: AU (occurrence: AU)
  Receive Date: 20130315
  Receipt Date: 20130315
  Transmission Date: 20140127
  Serious: Yes (Death, Hospitalization)
  Sender: FDA-Public Use
  Company Number: PHHY2013AU024847

PATIENT
  Age: 77 Year
  Sex: Female

DRUGS (10)
  1. OMEPRAZOLE [Suspect]
  2. SOTALOL [Suspect]
  3. ASPIRIN [Suspect]
  4. AROPAX [Suspect]
  5. BRICANYL [Suspect]
  6. CORTATE [Suspect]
  7. LIPITOR [Suspect]
  8. PANADOL OSTEO [Suspect]
  9. PRADAXA [Suspect]
     Indication: ATRIAL FIBRILLATION
     Dosage: 220 MG, UNK
     Route: 048
     Dates: start: 20110623
  10. THYROXINE [Suspect]

REACTIONS (3)
  - Death [Fatal]
  - Pancreatitis [Unknown]
  - Abdominal pain [Unknown]
